FAERS Safety Report 7488604-3 (Version None)
Quarter: 2011Q2

REPORT INFORMATION
  Report Type: 
  Country: None (occurrence: None)
  Receive Date: 20110518
  Receipt Date: 20110510
  Transmission Date: 20111010
  Serious: Yes (Hospitalization)
  Sender: FDA-Public Use
  Company Number: A0758026A

PATIENT
  Age: 67 Year
  Sex: Female
  Weight: 68.2 kg

DRUGS (10)
  1. PLAVIX [Concomitant]
  2. HUMALOG [Concomitant]
  3. TOPROL-XL [Concomitant]
  4. PRANDIN [Concomitant]
  5. PREVACID [Concomitant]
  6. ALTACE [Concomitant]
  7. AVANDIA [Suspect]
     Dosage: 4MG PER DAY
     Route: 048
     Dates: start: 20020901, end: 20070501
  8. HUMULIN R [Concomitant]
  9. NOVOLOG [Concomitant]
  10. INSULIN [Concomitant]

REACTIONS (2)
  - MYOCARDIAL INFARCTION [None]
  - CARDIAC FAILURE CONGESTIVE [None]
